FAERS Safety Report 5480590-0 (Version None)
Quarter: 2007Q4

REPORT INFORMATION
  Report Type: 
  Country: None (occurrence: None)
  Receive Date: 20071009
  Receipt Date: 20071002
  Transmission Date: 20080405
  Serious: Yes (Other)
  Sender: FDA-Public Use
  Company Number: ES-ASTRAZENECA-2007AC01905

PATIENT
  Age: 61 Year
  Sex: Female

DRUGS (3)
  1. FASLODEX [Suspect]
     Indication: BREAST CANCER METASTATIC
     Route: 030
     Dates: start: 20070102
  2. DORKEN [Concomitant]
     Route: 048
  3. CALCIUM SANDOZ [Concomitant]

REACTIONS (1)
  - DEEP VEIN THROMBOSIS [None]
